FAERS Safety Report 9607674 (Version 1)
Quarter: 2013Q4

REPORT INFORMATION
  Report Type: Spontaneous
  Country: US (occurrence: US)
  Receive Date: 20131009
  Receipt Date: 20131009
  Transmission Date: 20140711
  Serious: No
  Sender: FDA-Public Use
  Company Number: US-SANOFI-AVENTIS-2013SA064999

PATIENT
  Age: 77 Year
  Sex: Female

DRUGS (6)
  1. ARAVA [Suspect]
     Indication: ARTHRITIS
     Dates: start: 201303
  2. REMICADE [Suspect]
     Indication: ARTHRITIS
     Route: 042
     Dates: start: 20130415
  3. SYNTHROID [Concomitant]
     Indication: THYROID DISORDER
     Dosage: DOSE:1 IN 1 DAY
     Dates: start: 2000
  4. PLAQUENIL [Concomitant]
     Indication: ARTHRITIS
     Dosage: DOSE:1 IN 1 DAY
     Route: 048
  5. ZANTAC [Concomitant]
     Indication: NAUSEA
     Dosage: DOSE:1 IN 1 DAY
     Dates: start: 2013
  6. CARVEDILOL [Concomitant]
     Indication: BLOOD PRESSURE
     Dosage: DOSE:1 IN 1 DAY
     Route: 048
     Dates: start: 2009

REACTIONS (4)
  - Dysgeusia [Not Recovered/Not Resolved]
  - Diarrhoea [Not Recovered/Not Resolved]
  - Nausea [Not Recovered/Not Resolved]
  - Flatulence [Not Recovered/Not Resolved]
